FAERS Safety Report 6115827-8 (Version None)
Quarter: 2009Q1

REPORT INFORMATION
  Report Type: 
  Country: None (occurrence: None)
  Receive Date: 20090311
  Receipt Date: 20090227
  Transmission Date: 20090719
  Serious: Yes (Hospitalization)
  Sender: FDA-Public Use
  Company Number: 2009-00506

PATIENT
  Age: 83 Year
  Sex: Male
  Weight: 63 kg

DRUGS (15)
  1. VELCADE [Suspect]
     Indication: ACUTE MYELOID LEUKAEMIA
     Dosage: 1 MG/M2, UNK, IV BOLUS
     Route: 040
     Dates: start: 20081125, end: 20081128
  2. TIPIFARNIB             (TIPIFARNIB) ORAL DRUG UNSPECIFIED FORM [Suspect]
     Indication: ACUTE MYELOID LEUKAEMIA
     Dosage: 600 MG, ORAL
     Route: 048
     Dates: start: 20081125, end: 20081203
  3. ACYCLOVIR [Concomitant]
  4. AMBIEN [Concomitant]
  5. ATIVAN [Concomitant]
  6. CIPROFLOXACIN [Concomitant]
  7. COLACE (DOCUSATE SODIUM) [Concomitant]
  8. DIFLUCAN [Concomitant]
  9. GLUCOSAMINE W/CHONDROITIN SULFATES [Concomitant]
  10. GUAIFENESIN [Concomitant]
  11. LISINOPRIL (LISNOPRIL) [Concomitant]
  12. SENNA (SENNA) [Concomitant]
  13. TUMS (CALCIUM CARBONATE) [Concomitant]
  14. ACETAMINOPHEN [Concomitant]
  15. ASCORBIC ACID [Concomitant]

REACTIONS (6)
  - DIARRHOEA [None]
  - GENERAL SYMPTOM [None]
  - INFECTION [None]
  - NEUTROPHIL COUNT DECREASED [None]
  - PERFORMANCE STATUS DECREASED [None]
  - PNEUMONIA [None]
